FAERS Safety Report 19390505 (Version 1)
Quarter: 2021Q2

REPORT INFORMATION
  Report Type: Report from Study
  Country: CA (occurrence: CA)
  Receive Date: 20210608
  Receipt Date: 20210608
  Transmission Date: 20210717
  Serious: Yes (Other)
  Sender: FDA-Public Use
  Company Number: CA-ROCHE-2838059

PATIENT
  Age: 62 Year
  Sex: Male
  Weight: 80.4 kg

DRUGS (2)
  1. BEVACIZUMAB. [Suspect]
     Active Substance: BEVACIZUMAB
     Indication: HEPATOCELLULAR CARCINOMA
     Dosage: DATE OF MOST RECENT DOSE (1215 MG) OF BEVACIZUMAB PRIOR TO SERIOUS ADVERSE EVENT (SAE): 12/MAY/2021
     Route: 041
     Dates: start: 20210217
  2. ATEZOLIZUMAB. [Suspect]
     Active Substance: ATEZOLIZUMAB
     Indication: HEPATOCELLULAR CARCINOMA
     Dosage: DATE OF MOST RECENT DOSE (1200MG) OF ATEZOLIZUMAB PRIOR TO SERIOUS ADVERSE EVENT (SAE): 12/MAY/2021
     Route: 041
     Dates: start: 20210217

REACTIONS (1)
  - Mesenteric artery stenosis [Not Recovered/Not Resolved]

NARRATIVE: CASE EVENT DATE: 20210518
